FAERS Safety Report 8399494-9 (Version None)
Quarter: 2012Q2

REPORT INFORMATION
  Report Type: 
  Country: None (occurrence: None)
  Receive Date: 20120323
  Receipt Date: 20110215
  Transmission Date: 20120825
  Serious: Yes (Other)
  Sender: FDA-Public Use
  Company Number: 163-21880-11011989

PATIENT
  Age: 77 Year
  Sex: Female
  Weight: 60.3284 kg

DRUGS (8)
  1. COUMADIN [Concomitant]
  2. HYDROCODONE/APAP (PROCET /USA/)(TABLETS) [Concomitant]
  3. MEGESTROL (MEGESTROL)(400 MILLIGRAM/MILLILITERS, SUSPENSION) [Concomitant]
  4. REVLIMID [Suspect]
     Indication: MULTIPLE MYELOMA
     Dosage: 25 MG, DAILY, PO,15 MG, QD 3 WKS ON/1 WK OFF, PO, 10 MG. QD 3 WKS ON/1 WK OFF. PO
     Route: 048
     Dates: start: 20110211
  5. REVLIMID [Suspect]
     Indication: MULTIPLE MYELOMA
     Dosage: 25 MG, DAILY, PO,15 MG, QD 3 WKS ON/1 WK OFF, PO, 10 MG. QD 3 WKS ON/1 WK OFF. PO
     Route: 048
     Dates: start: 20101129
  6. REVLIMID [Suspect]
     Indication: MULTIPLE MYELOMA
     Dosage: 25 MG, DAILY, PO,15 MG, QD 3 WKS ON/1 WK OFF, PO, 10 MG. QD 3 WKS ON/1 WK OFF. PO
     Route: 048
     Dates: start: 20110107
  7. LORAZEPAM [Concomitant]
  8. ZOMETA [Concomitant]

REACTIONS (2)
  - NEUTROPENIA [None]
  - ANAEMIA [None]
